FAERS Safety Report 10998183 (Version 2)
Quarter: 2015Q2

REPORT INFORMATION
  Report Type: Spontaneous
  Country: IT (occurrence: None)
  Receive Date: 20150406
  Receipt Date: 20150424
  Transmission Date: 20150821
  Serious: Yes (Life-Threatening, Hospitalization, Other)
  Sender: FDA-Public Use
  Company Number: ADR-2015-00641

PATIENT

DRUGS (1)
  1. BACLOFEN INTRATHECAL [Suspect]
     Active Substance: BACLOFEN
     Indication: MUSCLE SPASTICITY
     Dosage: SEE B5

REACTIONS (12)
  - Respiratory failure [None]
  - Dehydration [None]
  - Medication error [None]
  - Hypothermia [None]
  - Sepsis [None]
  - Muscle rigidity [None]
  - Infection [None]
  - Pneumonia [None]
  - Asthenia [None]
  - Coma [None]
  - Device infusion issue [None]
  - Overdose [None]

NARRATIVE: CASE EVENT DATE: 20150119
